FAERS Safety Report 7897973-1 (Version None)
Quarter: 2011Q4

REPORT INFORMATION
  Report Type: 
  Country: None (occurrence: None)
  Receive Date: 20111107
  Receipt Date: 20111107
  Transmission Date: 20120403
  Serious: Yes (Other)
  Sender: FDA-Public Use
  Company Number: None

PATIENT
  Sex: Male
  Weight: 83.461 kg

DRUGS (1)
  1. VIMOVO [Suspect]
     Indication: ARTHRITIS
     Dosage: ONE TABLET
     Dates: start: 20110905, end: 20111102

REACTIONS (1)
  - RASH [None]
